FAERS Safety Report 7016691-5 (Version None)
Quarter: 2010Q3

REPORT INFORMATION
  Report Type: 
  Country: None (occurrence: None)
  Receive Date: 20100927
  Receipt Date: 20100917
  Transmission Date: 20110219
  Serious: Yes (Other)
  Sender: FDA-Public Use
  Company Number: CHPA2010US14865

PATIENT
  Sex: Male

DRUGS (1)
  1. ACETYLSALICYLIC ACID SRT [Suspect]
     Dosage: 10 TABLETS TOGETHER
     Route: 048

REACTIONS (3)
  - DRUG DEPENDENCE [None]
  - OEDEMA PERIPHERAL [None]
  - OVERDOSE [None]
